FAERS Safety Report 8985979 (Version 1)
Quarter: 2012Q4

REPORT INFORMATION
  Report Type: 
  Country: US (occurrence: US)
  Receive Date: 20121226
  Receipt Date: 20121226
  Transmission Date: 20130627
  Serious: No
  Sender: FDA-Public Use
  Company Number: US-009507513-1212USA006677

PATIENT
  Sex: Female

DRUGS (1)
  1. NASONEX [Suspect]
     Indication: SINUSITIS
     Dosage: Two sprays in each nostri 1 daily
     Route: 045
     Dates: start: 20121211

REACTIONS (2)
  - Drug dose omission [Unknown]
  - Product quality issue [Unknown]
